FAERS Safety Report 4300919-6 (Version None)
Quarter: 2004Q1

REPORT INFORMATION
  Report Type: 
  Country: None (occurrence: None)
  Receive Date: 20040220
  Receipt Date: 20040130
  Transmission Date: 20041129
  Serious: Yes (Death, Life-Threatening)
  Sender: FDA-Public Use
  Company Number: WAES 0402USA00013

PATIENT
  Age: 80 Year
  Sex: Female
  Weight: 40 kg

DRUGS (5)
  1. CEFAZOLIN SODIUM [Suspect]
     Indication: INFECTION
     Route: 042
     Dates: start: 20040113, end: 20040119
  2. CEFTAZIDIME [Suspect]
     Indication: INFECTION
     Route: 042
     Dates: start: 20040120, end: 20040122
  3. PRIMAXIN [Suspect]
     Indication: INFECTION
     Route: 042
     Dates: start: 20040123, end: 20040127
  4. FAMOTIDINE [Concomitant]
     Dates: start: 20040113, end: 20040117
  5. MAGNESIUM OXIDE [Concomitant]
     Dates: start: 20040113, end: 20040117

REACTIONS (3)
  - DISSEMINATED INTRAVASCULAR COAGULATION [None]
  - MULTI-ORGAN FAILURE [None]
  - PANCYTOPENIA [None]
